FAERS Safety Report 19452300 (Version 1)
Quarter: 2021Q2

REPORT INFORMATION
  Report Type: Spontaneous
  Country: US (occurrence: US)
  Receive Date: 20210623
  Receipt Date: 20210623
  Transmission Date: 20210717
  Serious: No
  Sender: FDA-Public Use
  Company Number: US-ACCORD-204396

PATIENT
  Age: 35 Year
  Sex: Male
  Weight: 65.32 kg

DRUGS (1)
  1. CLONAZEPAM. [Suspect]
     Active Substance: CLONAZEPAM
     Indication: ANXIETY
     Route: 048
     Dates: start: 20200928, end: 20200928

REACTIONS (4)
  - Drug ineffective [Unknown]
  - Dizziness [Unknown]
  - Headache [Unknown]
  - Discomfort [Unknown]

NARRATIVE: CASE EVENT DATE: 20200928
